FAERS Safety Report 7930840-3 (Version None)
Quarter: 2011Q4

REPORT INFORMATION
  Report Type: 
  Country: None (occurrence: None)
  Receive Date: 20111121
  Receipt Date: 20111108
  Transmission Date: 20120403
  Serious: Yes (Hospitalization, Other)
  Sender: FDA-Public Use
  Company Number: DE-ACTELION-A-CH2011-53613

PATIENT
  Sex: Male
  Weight: 6 kg

DRUGS (1)
  1. ZAVESCA [Suspect]
     Indication: NIEMANN-PICK DISEASE
     Dosage: 5 MG, OD
     Route: 048
     Dates: start: 20110815, end: 20110818

REACTIONS (2)
  - DIARRHOEA [None]
  - DYSENTERY [None]
